FAERS Safety Report 19827736 (Version 1)
Quarter: 2021Q3

REPORT INFORMATION
  Report Type: Spontaneous
  Country: US (occurrence: US)
  Receive Date: 20210914
  Receipt Date: 20210914
  Transmission Date: 20211014
  Serious: Yes (Other)
  Sender: FDA-Public Use
  Company Number: US-35507-2021-17194

PATIENT
  Age: 33 Year
  Sex: Female

DRUGS (15)
  1. SERTRALINE [Suspect]
     Active Substance: SERTRALINE HYDROCHLORIDE
     Indication: BIPOLAR I DISORDER
     Dosage: 100 MILLIGRAM, TITRATED TO 100 MG AT 35 WEEKS
     Route: 065
  2. GLYCOPYRROLATE. [Suspect]
     Active Substance: GLYCOPYRROLATE
     Indication: SECRETION DISCHARGE
  3. METHOHEXITAL [Suspect]
     Active Substance: METHOHEXITAL
     Indication: INDUCTION OF ANAESTHESIA
     Dosage: 1 MILLIGRAM/KILOGRAM
     Route: 042
  4. SERTRALINE [Suspect]
     Active Substance: SERTRALINE HYDROCHLORIDE
     Indication: ANXIETY
     Dosage: 50 MILLIGRAM
     Route: 065
  5. LURASIDONE [Suspect]
     Active Substance: LURASIDONE
     Dosage: 120 MILLIGRAM, QD
     Route: 065
  6. SUCCINYLCHOLIN [Suspect]
     Active Substance: SUCCINYLCHOLINE CHLORIDE
     Indication: INDUCTION OF ANAESTHESIA
     Dosage: 2 MILLIGRAM/KILOGRAM
     Route: 042
  7. LORAZEPAM. [Suspect]
     Active Substance: LORAZEPAM
     Indication: SEIZURE
     Dosage: UNK
     Route: 065
  8. GLYCOPYRROLATE. [Suspect]
     Active Substance: GLYCOPYRROLATE
     Indication: PROPHYLAXIS
     Dosage: 0.2 MILLIGRAM
     Route: 065
  9. ONDANSETRON [Suspect]
     Active Substance: ONDANSETRON
     Indication: PROPHYLAXIS OF NAUSEA AND VOMITING
     Dosage: UNK
     Route: 065
  10. QUETIAPINE FUMARATE. [Suspect]
     Active Substance: QUETIAPINE FUMARATE
     Dosage: 50 MILLIGRAM, PERIODICALLY
     Route: 065
  11. LURASIDONE [Suspect]
     Active Substance: LURASIDONE
     Indication: BIPOLAR I DISORDER
     Dosage: UNK
     Route: 065
  12. QUETIAPINE FUMARATE. [Suspect]
     Active Substance: QUETIAPINE FUMARATE
     Indication: BIPOLAR I DISORDER
     Dosage: 400 MILLIGRAM, QD
     Route: 065
  13. QUETIAPINE FUMARATE. [Suspect]
     Active Substance: QUETIAPINE FUMARATE
     Indication: INSOMNIA
     Dosage: 450 MILLIGRAM
     Route: 065
  14. QUETIAPINE FUMARATE. [Suspect]
     Active Substance: QUETIAPINE FUMARATE
     Dosage: 200 MILLIGRAM, QD (AT BEDTIME)
     Route: 065
  15. LURASIDONE [Suspect]
     Active Substance: LURASIDONE
     Dosage: 90 MILLIGRAM, QD
     Route: 065

REACTIONS (8)
  - Seizure [Recovered/Resolved]
  - Suicidal ideation [Unknown]
  - Exposure during pregnancy [Unknown]
  - Depressed mood [Unknown]
  - Sedation [Unknown]
  - Anxiety [Unknown]
  - Anhedonia [Unknown]
  - Insomnia [Unknown]
